FAERS Safety Report 6842115-4 (Version None)
Quarter: 2010Q3

REPORT INFORMATION
  Report Type: 
  Country: None (occurrence: None)
  Receive Date: 20100714
  Receipt Date: 20070721
  Transmission Date: 20110219
  Serious: No
  Sender: FDA-Public Use
  Company Number: US-PFIZER INC-2007062163

PATIENT
  Sex: Female
  Weight: 96.2 kg

DRUGS (6)
  1. CHANTIX [Suspect]
     Indication: SMOKING CESSATION THERAPY
     Dates: start: 20070713
  2. VALPROATE SODIUM [Concomitant]
  3. LAMICTAL [Concomitant]
  4. ABILIFY [Concomitant]
  5. VALIUM [Concomitant]
  6. RESTORIL [Concomitant]

REACTIONS (2)
  - KERATOCONJUNCTIVITIS SICCA [None]
  - NAUSEA [None]
